FAERS Safety Report 5624565-7 (Version None)
Quarter: 2008Q1

REPORT INFORMATION
  Report Type: 
  Country: None (occurrence: None)
  Receive Date: 20080208
  Receipt Date: 20080125
  Transmission Date: 20080703
  Serious: Yes (Death)
  Sender: FDA-Public Use
  Company Number: US022474

PATIENT
  Age: 46 Year
  Sex: Female

DRUGS (4)
  1. FENTANYL [Suspect]
     Dosage: INGESTION AND VAGINAL ADMINISTRATION ORAL
     Route: 048
  2. FLUOXETINE [Suspect]
     Dosage: INGESTION AND VAGINAL ADMINISTRATION ORAL
     Route: 048
  3. OXYCODONE AND ACETAMINOPHEN [Suspect]
     Dosage: ORAL
     Route: 048
  4. ALPRAZOLAM [Suspect]
     Dosage: INGESTION AND VAGINAL ADMINISTRATION ORAL
     Route: 048

REACTIONS (2)
  - CARDIO-RESPIRATORY ARREST [None]
  - COMPLETED SUICIDE [None]
